FAERS Safety Report 8519556-2 (Version None)
Quarter: 2012Q3

REPORT INFORMATION
  Report Type: 
  Country: None (occurrence: None)
  Receive Date: 20120718
  Receipt Date: 20120711
  Transmission Date: 20120928
  Serious: Yes (Other)
  Sender: FDA-Public Use
  Company Number: FR-BAYER-2012-034297

PATIENT
  Age: 75 Year
  Sex: Male
  Weight: 60 kg

DRUGS (8)
  1. RAMIPRIL [Concomitant]
     Indication: HYPERTENSION
     Dosage: 1 DF, QD
     Route: 048
     Dates: start: 20050101
  2. CIPROFLOXACIN HYDROCHLORIDE [Suspect]
     Indication: PROSTATITIS
     Dosage: 2 DF, QD
     Route: 048
     Dates: start: 20120219, end: 20120304
  3. ACETAMINOPHEN [Concomitant]
     Indication: PYREXIA
  4. ASPIRIN [Concomitant]
     Indication: ATRIAL FIBRILLATION
     Dosage: 1 DF, QD
     Route: 048
     Dates: start: 20050101
  5. ALLOPURINOL [Concomitant]
  6. PERMIXON [Concomitant]
     Dosage: 3 DF, QD
     Route: 048
  7. ACETAMINOPHEN [Concomitant]
     Indication: PAIN
  8. CIPROFLOXACIN HYDROCHLORIDE [Suspect]
     Indication: VIRAL INFECTION
     Dosage: 2 DF, QD
     Dates: start: 20120130

REACTIONS (1)
  - THROMBOSIS [None]
